FAERS Safety Report 9173298 (Version 1)
Quarter: 2013Q1

REPORT INFORMATION
  Report Type: Spontaneous
  Country: FR (occurrence: None)
  Receive Date: 20130208
  Receipt Date: 20130208
  Transmission Date: 20140127
  Serious: Yes (Hospitalization)
  Sender: FDA-Public Use
  Company Number: FK201300361

PATIENT
  Age: 44 Year
  Sex: Female

DRUGS (3)
  1. VOLUVEN [Suspect]
     Indication: SURGERY
     Dosage: INTRVENOUS (NOT OTHERWISE SPECIFIED)
     Route: 042
     Dates: start: 20120717, end: 20120717
  2. SUXAMETHONIUM [Suspect]
     Indication: INDUCTION AND MAINTENANCE OF ANAESTHESIA
     Dosage: INTRAVENOUS (NOT OTHERWISE SPECIFIED)
     Route: 042
     Dates: start: 20120717, end: 20120717
  3. EPHEDRINE [Suspect]

REACTIONS (4)
  - Bronchospasm [None]
  - Hypotension [None]
  - Generalised erythema [None]
  - Anaphylactic shock [None]
